FAERS Safety Report 7970103-3 (Version None)
Quarter: 2011Q4

REPORT INFORMATION
  Report Type: 
  Country: None (occurrence: None)
  Receive Date: 20111212
  Receipt Date: 20111202
  Transmission Date: 20120403
  Serious: Yes (Death, Life-Threatening)
  Sender: FDA-Public Use
  Company Number: JP-GENZYME-THYM-1002960

PATIENT
  Sex: Male
  Weight: 72 kg

DRUGS (19)
  1. MICAFUNGIN SODIUM [Concomitant]
     Indication: INFECTION PROPHYLAXIS
     Dosage: UNK
     Dates: start: 20100722, end: 20100807
  2. URSODIOL [Concomitant]
     Indication: PROPHYLAXIS
     Dosage: UNK
     Dates: start: 20100726, end: 20100807
  3. FLUDARABINE PHOSPHATE [Concomitant]
     Indication: BONE MARROW CONDITIONING REGIMEN
     Dosage: UNK
     Dates: start: 20100726, end: 20100727
  4. POLYMYXIN B SULFATE [Concomitant]
     Indication: GASTROINTESTINAL DISORDER
     Dosage: UNK
     Dates: start: 20100726, end: 20100807
  5. LENOGRASTIM [Concomitant]
     Indication: DELAYED ENGRAFTMENT
     Dosage: UNK
     Dates: start: 20100803, end: 20100806
  6. RED BLOOD CELLS [Concomitant]
     Indication: NON-HODGKIN'S LYMPHOMA
     Dosage: UNK
     Dates: start: 20100713, end: 20100806
  7. THYMOGLOBULIN [Suspect]
     Indication: BONE MARROW CONDITIONING REGIMEN
     Dosage: 180 MG, QD
     Route: 042
     Dates: start: 20100728, end: 20100730
  8. METHYLPREDNISOLONE SODIUM SUCCINATE [Concomitant]
     Indication: PREMEDICATION
     Dosage: UNK
     Dates: start: 20100728, end: 20100730
  9. BACTRIM [Concomitant]
     Indication: INFECTION PROPHYLAXIS
     Dosage: UNK
     Dates: start: 20100727, end: 20100728
  10. PANIPENEM [Concomitant]
     Indication: INFECTION PROPHYLAXIS
     Dosage: UNK
     Dates: start: 20100723, end: 20100807
  11. ALLOPURINOL [Concomitant]
     Indication: PROPHYLAXIS
     Dosage: UNK
     Dates: start: 20100726, end: 20100807
  12. ACYCLOVIR [Concomitant]
     Indication: INFECTION PROPHYLAXIS
     Dosage: UNK
     Dates: start: 20100726, end: 20100729
  13. ALBUMIN (HUMAN) [Concomitant]
     Indication: OEDEMA
     Dosage: UNK
     Dates: start: 20100723, end: 20100731
  14. FUROSEMIDE [Concomitant]
     Indication: OEDEMA
     Dosage: UNK
     Dates: start: 20100724, end: 20100731
  15. PLATELETS [Concomitant]
     Indication: NON-HODGKIN'S LYMPHOMA
     Dosage: UNK
     Dates: start: 20100731, end: 20100806
  16. CYCLOPHOSPHAMIDE [Concomitant]
     Indication: BONE MARROW CONDITIONING REGIMEN
     Dosage: UNK
     Dates: start: 20100726, end: 20100727
  17. VANCOMYCIN [Concomitant]
     Indication: SEPSIS
     Dosage: UNK
     Dates: start: 20100723, end: 20100804
  18. DEXCHLORPHENIRAMINE MALEATE [Concomitant]
     Indication: PREMEDICATION
     Dosage: UNK
     Dates: start: 20100726, end: 20100807
  19. IMMUNE GLOBULIN NOS [Concomitant]
     Indication: INFECTION PROPHYLAXIS
     Dosage: UNK
     Dates: start: 20100803, end: 20100803

REACTIONS (6)
  - PULMONARY OEDEMA [None]
  - CARDIAC FAILURE [None]
  - PYREXIA [None]
  - CARDIAC VALVE DISEASE [None]
  - NON-HODGKIN'S LYMPHOMA [None]
  - TUMOUR LYSIS SYNDROME [None]
